FAERS Safety Report 5447816-0 (Version None)
Quarter: 2007Q3

REPORT INFORMATION
  Report Type: 
  Country: None (occurrence: None)
  Receive Date: 20070910
  Receipt Date: 20070831
  Transmission Date: 20080115
  Serious: Yes (Other)
  Sender: FDA-Public Use
  Company Number: US-PFIZER INC-2007073924

PATIENT
  Age: 66 Year
  Sex: Male

DRUGS (3)
  1. LIPITOR [Suspect]
     Indication: HYPERCHOLESTEROLAEMIA
     Dosage: DAILY DOSE:10MG
     Route: 048
     Dates: start: 20060901, end: 20070301
  2. PRILOSEC [Concomitant]
  3. ASPIRIN [Concomitant]

REACTIONS (3)
  - AMNESIA [None]
  - COGNITIVE DISORDER [None]
  - SPEECH DISORDER [None]
